FAERS Safety Report 6484364-3 (Version None)
Quarter: 2009Q4

REPORT INFORMATION
  Report Type: 
  Country: None (occurrence: None)
  Receive Date: 20091203
  Receipt Date: 20091118
  Transmission Date: 20100525
  Serious: Yes (Other)
  Sender: FDA-Public Use
  Company Number: A-CH2009-30596

PATIENT

DRUGS (2)
  1. ZAVESCA [Suspect]
     Indication: NIEMANN-PICK DISEASE
     Dosage: ORAL
     Route: 048
  2. MEASLES, MUMPS AND RUBELLA VACCINE (MEASLES, MUMPS AND RUBELLA VACCINE [Suspect]

REACTIONS (3)
  - DRUG INTERACTION [None]
  - PURPURA [None]
  - VACCINATION COMPLICATION [None]
